FAERS Safety Report 13699665 (Version 2)
Quarter: 2017Q3

REPORT INFORMATION
  Report Type: Report from Study
  Country: None (occurrence: DE)
  Receive Date: 20170629
  Receipt Date: 20170708
  Transmission Date: 20171127
  Serious: Yes (Hospitalization)
  Sender: FDA-Public Use
  Company Number: DE-ABBVIE-17P-062-2020926-00

PATIENT
  Age: 50 Year
  Sex: Male

DRUGS (1)
  1. DUODOPA [Suspect]
     Active Substance: CARBIDOPA\LEVODOPA
     Indication: PARKINSON^S DISEASE
     Dosage: MD: 5.0ML; CRD: 2.4ML/H; ED: 1.0ML
     Route: 050
     Dates: start: 20170515

REACTIONS (3)
  - Rehabilitation therapy [Unknown]
  - Restlessness [Unknown]
  - Fall [Unknown]

NARRATIVE: CASE EVENT DATE: 201706
